FAERS Safety Report 4629332-9 (Version None)
Quarter: 2005Q2

REPORT INFORMATION
  Report Type: 
  Country: None (occurrence: None)
  Receive Date: 20050405
  Receipt Date: 20050324
  Transmission Date: 20051028
  Serious: Yes (Death)
  Sender: FDA-Public Use
  Company Number: B0376026A

PATIENT
  Sex: 0

DRUGS (3)
  1. ALKERAN [Suspect]
     Dosage: 200 MG/M2
  2. STEM CELL TRANSPLANT [Concomitant]
  3. NEUPOGEN [Concomitant]

REACTIONS (4)
  - CARDIO-RESPIRATORY ARREST [None]
  - DIFFUSE ALVEOLAR DAMAGE [None]
  - LUNG INFILTRATION [None]
  - NEUTROPHIL COUNT DECREASED [None]
